FAERS Safety Report 13066356 (Version 1)
Quarter: 2016Q4

REPORT INFORMATION
  Report Type: Spontaneous
  Country: CH (occurrence: CH)
  Receive Date: 20161227
  Receipt Date: 20161227
  Transmission Date: 20170207
  Serious: Yes (Death)
  Sender: FDA-Public Use
  Company Number: CH-DEPOMED, INC.-CH-2016DEP013047

PATIENT
  Sex: Female

DRUGS (1)
  1. TAPENTADOL HYDROCHLORIDE [Suspect]
     Active Substance: TAPENTADOL HYDROCHLORIDE
     Indication: PRODUCT USED FOR UNKNOWN INDICATION
     Dosage: 3 G, ONCE
     Route: 048
     Dates: start: 2015, end: 2015

REACTIONS (2)
  - Suicide attempt [Fatal]
  - Intentional overdose [Unknown]

NARRATIVE: CASE EVENT DATE: 2015
